FAERS Safety Report 6618969-3 (Version None)
Quarter: 2010Q1

REPORT INFORMATION
  Report Type: 
  Country: None (occurrence: None)
  Receive Date: 20100308
  Receipt Date: 20100222
  Transmission Date: 20100710
  Serious: Yes (Other)
  Sender: FDA-Public Use
  Company Number: US-JNJCH-2010004883

PATIENT
  Sex: Female

DRUGS (6)
  1. ROLAIDS TAB [Suspect]
     Indication: ABDOMINAL DISCOMFORT
     Dosage: TEXT:ONE AS NEEDED
     Route: 048
  2. ROLAIDS TAB [Suspect]
     Indication: ABDOMINAL PAIN UPPER
  3. ROLAIDS TAB [Suspect]
     Indication: NAUSEA
  4. NEXIUM [Concomitant]
     Indication: DRUG USE FOR UNKNOWN INDICATION
     Dosage: TEXT:UNKNOWN
     Route: 065
  5. TYLENOL-500 [Concomitant]
     Indication: DRUG USE FOR UNKNOWN INDICATION
     Dosage: TEXT:UNKNOWN
     Route: 065
  6. PREVACID [Concomitant]
     Indication: DRUG USE FOR UNKNOWN INDICATION
     Dosage: TEXT:UNKNOWN
     Route: 065

REACTIONS (3)
  - NAUSEA [None]
  - OFF LABEL USE [None]
  - PRODUCT QUALITY ISSUE [None]
